FAERS Safety Report 16462288 (Version 2)
Quarter: 2019Q2

REPORT INFORMATION
  Report Type: Report from Study
  Country: None (occurrence: US)
  Receive Date: 20190621
  Receipt Date: 20190625
  Transmission Date: 20190711
  Serious: Yes (Other)
  Sender: FDA-Public Use
  Company Number: US-ABBVIE-19S-163-2827459-00

PATIENT

DRUGS (1)
  1. DUOPA [Suspect]
     Active Substance: CARBIDOPA\LEVODOPA
     Indication: PARKINSON^S DISEASE
     Route: 050

REACTIONS (8)
  - Duodenal ulcer [Not Recovered/Not Resolved]
  - Device dislocation [Unknown]
  - Device kink [Unknown]
  - Gastric ulcer [Unknown]
  - Embedded device [Unknown]
  - Device occlusion [Unknown]
  - Device issue [Unknown]
  - Foreign body reaction [Unknown]
